FAERS Safety Report 9699107 (Version 1)
Quarter: 2013Q4

REPORT INFORMATION
  Report Type: Spontaneous
  Country: IT (occurrence: ES)
  Receive Date: 20131120
  Receipt Date: 20131120
  Transmission Date: 20140711
  Serious: Yes (Other)
  Sender: FDA-Public Use
  Company Number: ES-FRI-1000051473

PATIENT
  Age: 51 Year
  Sex: Female

DRUGS (2)
  1. MONUROL [Suspect]
     Indication: URINARY TRACT INFECTION
     Dosage: 2 DF
     Route: 048
     Dates: start: 20131008
  2. GABAPENTINA [Suspect]
     Route: 048
     Dates: start: 20130906

REACTIONS (1)
  - Vertigo [Unknown]
